FAERS Safety Report 6430946-4 (Version None)
Quarter: 2009Q4

REPORT INFORMATION
  Report Type: 
  Country: None (occurrence: None)
  Receive Date: 20091104
  Receipt Date: 20091027
  Transmission Date: 20100525
  Serious: Yes (Hospitalization)
  Sender: FDA-Public Use
  Company Number: 8053802

PATIENT
  Age: 47 Year
  Sex: Male

DRUGS (1)
  1. CIMZIA [Suspect]
     Dosage: 400 MG / M SC
     Route: 058
     Dates: start: 20090214

REACTIONS (2)
  - FISTULA REPAIR [None]
  - SMALL INTESTINE OPERATION [None]
